FAERS Safety Report 20026949 (Version 1)
Quarter: 2021Q4

REPORT INFORMATION
  Report Type: Spontaneous
  Country: BR (occurrence: BR)
  Receive Date: 20211103
  Receipt Date: 20211103
  Transmission Date: 20220303
  Serious: Yes (Other)
  Sender: FDA-Public Use
  Company Number: BR-ABBOTT-2021A-1341024

PATIENT
  Sex: Female

DRUGS (2)
  1. LUVOX [Suspect]
     Active Substance: FLUVOXAMINE MALEATE
     Indication: Anxiety
     Dosage: UNIT DOSE: 25 MG; ONLY TOOK HALF A TABLET (ONCE)
     Route: 048
  2. METHYLPHENIDATE HYDROCHLORIDE [Concomitant]
     Active Substance: METHYLPHENIDATE HYDROCHLORIDE
     Indication: Product used for unknown indication
     Dosage: STARTED A LONG TIME AGO

REACTIONS (6)
  - Hypersensitivity [Recovered/Resolved]
  - Lip swelling [Recovered/Resolved]
  - Peripheral swelling [Recovered/Resolved]
  - Eye swelling [Recovered/Resolved]
  - Product use in unapproved indication [Unknown]
  - Off label use [Unknown]
